FAERS Safety Report 14575677 (Version 2)
Quarter: 2018Q1

REPORT INFORMATION
  Report Type: Spontaneous
  Country: JP (occurrence: JP)
  Receive Date: 20180227
  Receipt Date: 20180329
  Transmission Date: 20180509
  Serious: Yes (Other)
  Sender: FDA-Public Use
  Company Number: JP-ROCHE-2080392

PATIENT
  Age: 94 Year
  Sex: Female

DRUGS (5)
  1. LUCENTIS [Suspect]
     Active Substance: RANIBIZUMAB
     Dosage: RIGHT EYE
     Route: 031
     Dates: start: 2013
  2. LUCENTIS [Suspect]
     Active Substance: RANIBIZUMAB
     Indication: AGE-RELATED MACULAR DEGENERATION
     Dosage: UNK
     Route: 031
     Dates: start: 2009
  3. LUCENTIS [Suspect]
     Active Substance: RANIBIZUMAB
     Dosage: RIGHT EYE
     Route: 031
     Dates: start: 2010
  4. LUCENTIS [Suspect]
     Active Substance: RANIBIZUMAB
     Dosage: RIGHT EYE
     Route: 031
     Dates: start: 2012
  5. EYLEA [Suspect]
     Active Substance: AFLIBERCEPT
     Indication: PRODUCT USED FOR UNKNOWN INDICATION
     Route: 031

REACTIONS (1)
  - Visual acuity reduced [Recovering/Resolving]
